FAERS Safety Report 4747104-1 (Version None)
Quarter: 2005Q3

REPORT INFORMATION
  Report Type: 
  Country: None (occurrence: None)
  Receive Date: 20050815
  Receipt Date: 20050803
  Transmission Date: 20060218
  Serious: Yes (Life-Threatening)
  Sender: FDA-Public Use
  Company Number: HQWYE708804AUG05

PATIENT
  Sex: Female

DRUGS (2)
  1. EFFEXOR XR [Suspect]
     Indication: SUICIDAL IDEATION
     Dosage: 300 MG 2X PER 1 DAY, ORAL; SEE IMAGE
     Route: 048
     Dates: end: 20050701
  2. EFFEXOR XR [Suspect]
     Indication: SUICIDAL IDEATION
     Dosage: 300 MG 2X PER 1 DAY, ORAL; SEE IMAGE
     Route: 048
     Dates: start: 20050701

REACTIONS (4)
  - AGGRESSION [None]
  - DRUG DISPENSING ERROR [None]
  - DRUG WITHDRAWAL SYNDROME [None]
  - SUICIDAL IDEATION [None]
